FAERS Safety Report 8401627-2 (Version None)
Quarter: 2012Q2

REPORT INFORMATION
  Report Type: 
  Country: None (occurrence: None)
  Receive Date: 20120529
  Receipt Date: 20100820
  Transmission Date: 20120825
  Serious: Yes (Death)
  Sender: FDA-Public Use
  Company Number: 009954

PATIENT
  Age: 96 Year
  Sex: Female

DRUGS (9)
  1. LASIX [Concomitant]
  2. ENSURE LIWUID (PARENTERAL NUTRITION) [Concomitant]
  3. PLETAL [Suspect]
     Indication: PERIPHERAL ARTERIAL OCCLUSIVE DISEASE
     Dosage: 100 MG, BID, ORAL
     Route: 048
     Dates: start: 20090930, end: 20091011
  4. VERAPAMIL HYDROCHLORIDE [Concomitant]
  5. SPIRONOLACTONE [Concomitant]
  6. LENDORMIN D (BROTIZOLAM) [Concomitant]
  7. LANSOPRAZOLE [Concomitant]
  8. MAIBASTAN (PRAVASTATIN SODIUM) [Concomitant]
  9. D ALFA (ALFACALCIDOL) [Concomitant]

REACTIONS (3)
  - CONDITION AGGRAVATED [None]
  - DECREASED APPETITE [None]
  - GENERAL PHYSICAL HEALTH DETERIORATION [None]
